FAERS Safety Report 20224997 (Version 3)
Quarter: 2022Q1

REPORT INFORMATION
  Report Type: Spontaneous
  Country: US (occurrence: US)
  Receive Date: 20211223
  Receipt Date: 20220131
  Transmission Date: 20220423
  Serious: No
  Sender: FDA-Public Use
  Company Number: US-009507513-2112USA004869

PATIENT
  Sex: Female

DRUGS (3)
  1. PROVENTIL [Suspect]
     Active Substance: ALBUTEROL
     Dosage: 3 OR 4 TIMES A DAY
  2. PROVENTIL [Suspect]
     Active Substance: ALBUTEROL
     Dosage: 3 OR 4 TIMES A DAY
  3. PROVENTIL [Suspect]
     Active Substance: ALBUTEROL
     Dosage: 3 OR 4 TIMES A DAY

REACTIONS (5)
  - Illness [Unknown]
  - Device breakage [Unknown]
  - Product outer packaging issue [Unknown]
  - Product packaging issue [Unknown]
  - Inappropriate schedule of product administration [Unknown]
